FAERS Safety Report 10989171 (Version 1)
Quarter: 2015Q2

REPORT INFORMATION
  Report Type: Spontaneous
  Country: GB (occurrence: GB)
  Receive Date: 20150406
  Receipt Date: 20150406
  Transmission Date: 20150821
  Serious: Yes (Other)
  Sender: FDA-Public Use
  Company Number: GB-AUROBINDO-AUR-APL-2015-02744

PATIENT
  Age: 42 Year
  Sex: Male
  Weight: 75 kg

DRUGS (1)
  1. NAPROXEN. [Suspect]
     Active Substance: NAPROXEN
     Indication: PRODUCT USED FOR UNKNOWN INDICATION
     Dosage: 1 DF, TWO TIMES A DAY (AFTER FOOD)
     Route: 065
     Dates: start: 20140928

REACTIONS (3)
  - Angioedema [Unknown]
  - Hypersensitivity [Unknown]
  - Rash macular [Unknown]

NARRATIVE: CASE EVENT DATE: 20150317
